FAERS Safety Report 4863695-4 (Version None)
Quarter: 2005Q4

REPORT INFORMATION
  Report Type: 
  Country: None (occurrence: None)
  Receive Date: 20051222
  Receipt Date: 20050623
  Transmission Date: 20060501
  Serious: No
  Sender: FDA-Public Use
  Company Number: 1205309

PATIENT
  Age: 46 Year
  Sex: Female

DRUGS (3)
  1. FLONASE [Suspect]
     Indication: MULTIPLE ALLERGIES
     Route: 045
     Dates: start: 20050101
  2. ZYRTEC [Suspect]
     Indication: MULTIPLE ALLERGIES
     Route: 065
  3. CLARITIN D24 [Suspect]
     Route: 065
     Dates: start: 20050424, end: 20050428

REACTIONS (2)
  - DRUG INEFFECTIVE [None]
  - NERVOUSNESS [None]
